FAERS Safety Report 25433497 (Version 2)
Quarter: 2025Q2

REPORT INFORMATION
  Report Type: Spontaneous
  Country: IN (occurrence: IN)
  Receive Date: 20250613
  Receipt Date: 20250630
  Transmission Date: 20250716
  Serious: Yes (Other)
  Sender: RANBAXY
  Company Number: IN-SUN PHARMACEUTICAL INDUSTRIES INC-2025R1-511621

PATIENT
  Age: 4 Decade
  Sex: Female

DRUGS (2)
  1. MOXIFLOXACIN [Suspect]
     Active Substance: MOXIFLOXACIN
     Indication: Keratitis
     Route: 061
  2. ATROPINE [Suspect]
     Active Substance: ATROPINE
     Indication: Keratitis
     Dosage: 1 PERCENT, TID
     Route: 061

REACTIONS (1)
  - Drug ineffective [Unknown]
